FAERS Safety Report 22876340 (Version 4)
Quarter: 2023Q4

REPORT INFORMATION
  Report Type: Spontaneous
  Country: US (occurrence: US)
  Receive Date: 20230829
  Receipt Date: 20231107
  Transmission Date: 20240110
  Serious: Yes (Other)
  Sender: FDA-Public Use
  Company Number: US-AMGEN-USASP2023150966

PATIENT
  Age: 65 Year
  Sex: Female

DRUGS (2)
  1. PROCRIT [Suspect]
     Active Substance: ERYTHROPOIETIN
     Indication: Anaemia
     Dosage: UNK UNK, Q3WK (20000.00 UNITS / 2.00 ML)
     Route: 065
     Dates: start: 202307
  2. PROCRIT [Suspect]
     Active Substance: ERYTHROPOIETIN
     Dosage: UNK UNK, Q3WK (20000.00 UNITS / 2.00 ML)
     Route: 065

REACTIONS (5)
  - Haemoglobin decreased [Unknown]
  - Dyspnoea [Unknown]
  - Illness [Unknown]
  - Incorrect dose administered [Unknown]
  - Wrong technique in product usage process [Unknown]

NARRATIVE: CASE EVENT DATE: 20230801
